FAERS Safety Report 8108537-9 (Version None)
Quarter: 2012Q1

REPORT INFORMATION
  Report Type: 
  Country: None (occurrence: None)
  Receive Date: 20120202
  Receipt Date: 20120129
  Transmission Date: 20120608
  Serious: Yes (Death, Other)
  Sender: FDA-Public Use
  Company Number: PHHY2012AE008406

PATIENT
  Sex: Male
  Weight: 62 kg

DRUGS (1)
  1. EXJADE [Suspect]
     Indication: CHELATION THERAPY
     Dosage: 1500 MG, DAILY
     Route: 048
     Dates: start: 20070701

REACTIONS (6)
  - BONE PAIN [None]
  - PYREXIA [None]
  - SERUM FERRITIN INCREASED [None]
  - CARDIO-RESPIRATORY ARREST [None]
  - CONVULSION [None]
  - CONFUSIONAL STATE [None]
